FAERS Safety Report 21387016 (Version 1)
Quarter: 2022Q3

REPORT INFORMATION
  Report Type: Spontaneous
  Country: US (occurrence: US)
  Receive Date: 20220928
  Receipt Date: 20220928
  Transmission Date: 20221027
  Serious: Yes (Other)
  Sender: FDA-Public Use
  Company Number: US-La Jolla Pharmaceutical-2022TP000010

PATIENT
  Age: 10 Year

DRUGS (4)
  1. XERAVA [Suspect]
     Active Substance: ERAVACYCLINE DIHYDROCHLORIDE
     Indication: Infection
     Route: 042
  2. XERAVA [Suspect]
     Active Substance: ERAVACYCLINE DIHYDROCHLORIDE
     Indication: Stenotrophomonas infection
  3. CEFIDEROCOL [Concomitant]
     Active Substance: CEFIDEROCOL
     Indication: Infection
  4. CEFIDEROCOL [Concomitant]
     Active Substance: CEFIDEROCOL
     Indication: Stenotrophomonas infection

REACTIONS (2)
  - Pancreatitis [Recovering/Resolving]
  - Off label use [Recovered/Resolved]
